FAERS Safety Report 6914769-5 (Version None)
Quarter: 2010Q3

REPORT INFORMATION
  Report Type: 
  Country: None (occurrence: None)
  Receive Date: 20100809
  Receipt Date: 20100803
  Transmission Date: 20110219
  Serious: Yes (Hospitalization)
  Sender: FDA-Public Use
  Company Number: FR-BRISTOL-MYERS SQUIBB COMPANY-15224702

PATIENT
  Age: 61 Year
  Sex: Male

DRUGS (4)
  1. REYATAZ [Suspect]
     Indication: HIV INFECTION
     Route: 048
     Dates: start: 20050501
  2. VIDEX [Suspect]
     Indication: HIV INFECTION
     Dosage: CAPSULE
     Route: 048
     Dates: start: 20000204, end: 20070401
  3. ZIAGEN [Suspect]
     Indication: HIV INFECTION
     Dosage: TABS
     Route: 048
     Dates: start: 20000204
  4. NORVIR [Suspect]
     Indication: HIV INFECTION
     Route: 048
     Dates: start: 20050501

REACTIONS (2)
  - LIVER DISORDER [None]
  - PORTAL HYPERTENSION [None]
